FAERS Safety Report 7900954-2 (Version None)
Quarter: 2011Q4

REPORT INFORMATION
  Report Type: 
  Country: None (occurrence: None)
  Receive Date: 20111108
  Receipt Date: 20111103
  Transmission Date: 20120403
  Serious: Yes (Hospitalization)
  Sender: FDA-Public Use
  Company Number: US-B.I. PHARMACEUTICALS,INC./RIDGEFIELD-2011-BP-17916BP

PATIENT
  Sex: Female

DRUGS (16)
  1. SPIRIVA [Suspect]
     Indication: CHRONIC OBSTRUCTIVE PULMONARY DISEASE
     Dosage: 18 MCG
     Route: 055
     Dates: end: 20110501
  2. GABAPENTIN [Concomitant]
     Indication: MYALGIA
  3. MUCINEX [Concomitant]
     Indication: CHRONIC OBSTRUCTIVE PULMONARY DISEASE
  4. SPIRIVA [Suspect]
     Route: 055
     Dates: start: 20110501
  5. FORADIL [Concomitant]
     Indication: CHRONIC OBSTRUCTIVE PULMONARY DISEASE
  6. POTASSIUM [Concomitant]
     Indication: MINERAL SUPPLEMENTATION
  7. OXYGEN [Concomitant]
     Indication: CHRONIC OBSTRUCTIVE PULMONARY DISEASE
  8. LEVEMIR [Concomitant]
     Indication: DIABETES MELLITUS
  9. LISINOPRIL [Concomitant]
     Indication: HYPERTENSION
  10. FUROSEMIDE [Concomitant]
     Indication: OEDEMA PERIPHERAL
  11. ASPIRIN [Concomitant]
  12. ALBUTEROL [Concomitant]
     Indication: CHRONIC OBSTRUCTIVE PULMONARY DISEASE
  13. LANTUS [Concomitant]
     Indication: DIABETES MELLITUS
  14. THEOPHYLLINE [Concomitant]
     Indication: CHRONIC OBSTRUCTIVE PULMONARY DISEASE
  15. NOVOLOG [Concomitant]
     Indication: DIABETES MELLITUS
  16. PREDNIZONE [Concomitant]

REACTIONS (2)
  - DYSPNOEA [None]
  - RESPIRATORY TRACT INFECTION [None]
